FAERS Safety Report 7077134-9 (Version None)
Quarter: 2010Q4

REPORT INFORMATION
  Report Type: 
  Country: None (occurrence: None)
  Receive Date: 20101101
  Receipt Date: 20101028
  Transmission Date: 20110411
  Serious: Yes (Hospitalization)
  Sender: FDA-Public Use
  Company Number: A0833077A

PATIENT
  Age: 38 Year
  Sex: Male

DRUGS (2)
  1. AVANDIA [Suspect]
     Indication: DIABETES MELLITUS
     Dosage: 4MG PER DAY
     Route: 048
     Dates: start: 20030401, end: 20090601
  2. AVANDAMET [Suspect]
     Route: 048
     Dates: start: 20031212, end: 20090203

REACTIONS (1)
  - CEREBROVASCULAR ACCIDENT [None]
